FAERS Safety Report 10090712 (Version 1)
Quarter: 2014Q2

REPORT INFORMATION
  Report Type: Spontaneous
  Country: PT (occurrence: PT)
  Receive Date: 20140421
  Receipt Date: 20140421
  Transmission Date: 20141212
  Serious: Yes (Other)
  Sender: FDA-Public Use
  Company Number: PHHY2014PT046308

PATIENT
  Age: 44 Year
  Sex: Female

DRUGS (2)
  1. ETHINYLESTRADIOL+GESTODENE [Suspect]
     Indication: AMENORRHOEA
  2. ETHINYLESTRADIOL+GESTODENE [Suspect]
     Indication: OESTRADIOL INCREASED

REACTIONS (7)
  - Lichen planus [Recovering/Resolving]
  - Papule [Recovering/Resolving]
  - Pemphigoid [Recovering/Resolving]
  - Dermatitis bullous [Recovering/Resolving]
  - Prurigo [Recovering/Resolving]
  - Pruritus [Recovering/Resolving]
  - Blister [Recovering/Resolving]
